FAERS Safety Report 4866379-1 (Version None)
Quarter: 2005Q4

REPORT INFORMATION
  Report Type: 
  Country: None (occurrence: None)
  Receive Date: 20051227
  Receipt Date: 20050718
  Transmission Date: 20060501
  Serious: Yes (Hospitalization)
  Sender: FDA-Public Use
  Company Number: US-MERCK-0507USA02366

PATIENT
  Age: 60 Year
  Sex: Female
  Weight: 93 kg

DRUGS (5)
  1. VIOXX [Suspect]
     Indication: BURSITIS
     Route: 048
     Dates: start: 20031201, end: 20040408
  2. VIOXX [Suspect]
     Indication: RHEUMATOID ARTHRITIS
     Route: 048
     Dates: start: 20031201, end: 20040408
  3. PREDNISONE [Concomitant]
     Route: 065
  4. METHOTREXATE [Concomitant]
     Route: 065
  5. HYDROCODONE HYDROCHLORIDE [Concomitant]
     Route: 065

REACTIONS (7)
  - ANGINA PECTORIS [None]
  - BLADDER DISORDER [None]
  - CHEST PAIN [None]
  - HYPERTENSION [None]
  - LIMB INJURY [None]
  - MYOCARDIAL INFARCTION [None]
  - OSTEOMYELITIS [None]
